FAERS Safety Report 25543796 (Version 1)
Quarter: 2025Q3

REPORT INFORMATION
  Report Type: Other
  Country: ZA (occurrence: ZA)
  Receive Date: 20250711
  Receipt Date: 20250711
  Transmission Date: 20251021
  Serious: Yes (Death, Hospitalization)
  Sender: ANI
  Company Number: ZA-ANIPHARMA-023421

PATIENT
  Age: 25 Year
  Sex: Male

DRUGS (11)
  1. VANCOMYCIN [Suspect]
     Active Substance: VANCOMYCIN
     Indication: Corynebacterium infection
  2. DOXYCYCLINE [Concomitant]
     Active Substance: DOXYCYCLINE
     Indication: Arthropod bite
  3. GENTAMICIN [Concomitant]
     Active Substance: GENTAMICIN
     Indication: Corynebacterium infection
  4. PENICILLIN G [Concomitant]
     Active Substance: PENICILLIN G
     Indication: Corynebacterium infection
  5. PENICILLIN G [Concomitant]
     Active Substance: PENICILLIN G
     Indication: Endocarditis
  6. GENTAMICIN [Concomitant]
     Active Substance: GENTAMICIN
     Indication: Endocarditis
  7. VANCOMYCIN [Suspect]
     Active Substance: VANCOMYCIN
     Indication: Endocarditis
  8. PENICILLIN G [Concomitant]
     Active Substance: PENICILLIN G
     Indication: Corynebacterium infection
  9. PENICILLIN G [Concomitant]
     Active Substance: PENICILLIN G
     Indication: Endocarditis
  10. GENTAMICIN [Concomitant]
     Active Substance: GENTAMICIN
     Indication: Corynebacterium infection
  11. GENTAMICIN [Concomitant]
     Active Substance: GENTAMICIN
     Indication: Endocarditis

REACTIONS (1)
  - Drug ineffective [Fatal]
